FAERS Safety Report 5528717-6 (Version None)
Quarter: 2007Q4

REPORT INFORMATION
  Report Type: 
  Country: None (occurrence: None)
  Receive Date: 20071129
  Receipt Date: 20071109
  Transmission Date: 20080405
  Serious: No
  Sender: FDA-Public Use
  Company Number: US-JNJFOC-20071103833

PATIENT
  Age: 49 Year
  Sex: Female

DRUGS (1)
  1. INVEGA [Suspect]
     Indication: PARANOIA
     Dosage: 6 MG TO 9 MG/DAY
     Route: 048

REACTIONS (2)
  - HEADACHE [None]
  - INSOMNIA [None]
